FAERS Safety Report 6838821-8 (Version None)
Quarter: 2010Q3

REPORT INFORMATION
  Report Type: 
  Country: None (occurrence: None)
  Receive Date: 20100709
  Receipt Date: 20100623
  Transmission Date: 20110219
  Serious: Yes (Life-Threatening, Other)
  Sender: FDA-Public Use
  Company Number: 2010AL000087

PATIENT
  Age: 62 Year
  Sex: Female

DRUGS (1)
  1. PRALATREXATE (PRALATREXATE) [Suspect]
     Indication: PERIPHERAL T-CELL LYMPHOMA UNSPECIFIED
     Dosage: IV
     Route: 042
     Dates: start: 20070817, end: 20090526

REACTIONS (6)
  - BONE MARROW FAILURE [None]
  - COUGH [None]
  - FATIGUE [None]
  - PYREXIA [None]
  - RESPIRATORY DISORDER [None]
  - THERAPEUTIC RESPONSE DECREASED [None]
